FAERS Safety Report 4666804-5 (Version None)
Quarter: 2005Q2

REPORT INFORMATION
  Report Type: 
  Country: None (occurrence: None)
  Receive Date: 20050518
  Receipt Date: 20050218
  Transmission Date: 20051028
  Serious: Yes (Other)
  Sender: FDA-Public Use
  Company Number: 2005034126

PATIENT
  Age: 16 Year
  Sex: Female
  Weight: 52.1637 kg

DRUGS (3)
  1. DEPO-PROVERA [Suspect]
     Indication: CONTRACEPTION
     Dosage: SEE IMAGE
     Route: 030
     Dates: start: 20030301, end: 20030301
  2. DEPO-PROVERA [Suspect]
     Indication: CONTRACEPTION
     Dosage: SEE IMAGE
     Route: 030
     Dates: start: 20050201, end: 20050201
  3. SERTRALINE HCL [Concomitant]

REACTIONS (3)
  - BACK PAIN [None]
  - FALL [None]
  - OSTEOPOROSIS [None]
